FAERS Safety Report 4834898-X (Version None)
Quarter: 2005Q4

REPORT INFORMATION
  Report Type: 
  Country: None (occurrence: None)
  Receive Date: 20051115
  Receipt Date: 20051101
  Transmission Date: 20060501
  Serious: Yes (Disabling)
  Sender: FDA-Public Use
  Company Number: CLOF-10130

PATIENT
  Age: 60 Year
  Sex: Female

DRUGS (1)
  1. CLOFARABINE [Suspect]
     Indication: NON-SMALL CELL LUNG CANCER
     Dates: start: 20051004, end: 20051018

REACTIONS (3)
  - AMNESIA [None]
  - CONFUSIONAL STATE [None]
  - DISORIENTATION [None]
